FAERS Safety Report 5158673-4 (Version None)
Quarter: 2006Q4

REPORT INFORMATION
  Report Type: 
  Country: None (occurrence: None)
  Receive Date: 20061128
  Receipt Date: 20061121
  Transmission Date: 20070319
  Serious: Yes (Other)
  Sender: FDA-Public Use
  Company Number: US-JNJFOC-20061105175

PATIENT
  Age: 56 Year
  Sex: Female

DRUGS (2)
  1. REMICADE [Suspect]
     Indication: RHEUMATOID ARTHRITIS
     Dosage: HAS COMPLETED 14 DOSES OF INFLIXIMAB.
     Route: 042
  2. LISINOPRIL [Concomitant]

REACTIONS (1)
  - BRAIN NEOPLASM [None]
